FAERS Safety Report 6868915-2 (Version None)
Quarter: 2010Q3

REPORT INFORMATION
  Report Type: 
  Country: None (occurrence: None)
  Receive Date: 20100722
  Receipt Date: 20080731
  Transmission Date: 20110219
  Serious: No
  Sender: FDA-Public Use
  Company Number: US-PFIZER INC-2008051678

PATIENT
  Sex: Female
  Weight: 68.2 kg

DRUGS (5)
  1. CHANTIX [Suspect]
     Indication: SMOKING CESSATION THERAPY
     Route: 048
     Dates: start: 20080218, end: 20080326
  2. WELLBUTRIN XL [Suspect]
  3. ORAL CONTRACEPTIVE NOS [Concomitant]
     Dates: start: 20080301
  4. VITAMINS [Concomitant]
  5. CONTRACEPTIVE, UNSPECIFIED [Concomitant]
     Dates: end: 20080301

REACTIONS (7)
  - ANGER [None]
  - CRYING [None]
  - DEPRESSION [None]
  - EMOTIONAL DISORDER [None]
  - INCORRECT DOSE ADMINISTERED [None]
  - IRRITABILITY [None]
  - WRONG TECHNIQUE IN DRUG USAGE PROCESS [None]
